FAERS Safety Report 7866580-9 (Version None)
Quarter: 2011Q4

REPORT INFORMATION
  Report Type: 
  Country: None (occurrence: None)
  Receive Date: 20111028
  Receipt Date: 20110708
  Transmission Date: 20120403
  Serious: No
  Sender: FDA-Public Use
  Company Number: US-GLAXOSMITHKLINE-A0936069A

PATIENT
  Age: 67 Year
  Sex: Male

DRUGS (8)
  1. SAW PALMETTO [Concomitant]
  2. CARTIA XT [Concomitant]
  3. ADVAIR DISKUS 100/50 [Suspect]
     Indication: ASTHMA
     Dosage: 1PUFF TWICE PER DAY
     Route: 055
     Dates: start: 20110601
  4. XOPENEX [Concomitant]
  5. CARVEDILOL [Concomitant]
  6. SINGULAIR [Concomitant]
  7. WARFARIN SODIUM [Concomitant]
  8. CITRACAL [Concomitant]

REACTIONS (1)
  - CHEST PAIN [None]
